FAERS Safety Report 15089595 (Version 2)
Quarter: 2018Q3

REPORT INFORMATION
  Report Type: Spontaneous
  Country: JP (occurrence: JP)
  Receive Date: 20180629
  Receipt Date: 20180919
  Transmission Date: 20181010
  Serious: Yes (Hospitalization)
  Sender: FDA-Public Use
  Company Number: JP-009507513-1806JPN012029

PATIENT
  Age: 66 Year
  Sex: Male

DRUGS (18)
  1. ARTIST [Concomitant]
     Active Substance: CARVEDILOL
     Dosage: UNK
     Dates: start: 201011, end: 20110809
  2. EPADEL S [Concomitant]
     Active Substance: ICOSAPENT ETHYL
     Dosage: UNK
     Dates: start: 201011
  3. MICARDIS [Concomitant]
     Active Substance: TELMISARTAN
     Dosage: UNK
     Dates: start: 201011
  4. MYONAL (EPERISONE HYDROCHLORIDE) [Concomitant]
     Active Substance: EPERISONE HYDROCHLORIDE
     Dosage: UNK
     Dates: start: 20110415
  5. GLACTIV [Suspect]
     Active Substance: SITAGLIPTIN
     Indication: TYPE 2 DIABETES MELLITUS
     Dosage: 50 MG, (STRENGTH: 12.5 MG, 25MG, 50 MG, 100 MG) (TWICE A DAY)
     Route: 048
     Dates: start: 20100315, end: 20110822
  6. GLACTIV [Suspect]
     Active Substance: SITAGLIPTIN
     Dosage: 25 MG, (STRENGTH: 12.5 MG, 25MG, 50 MG, 100 MG) (ONCE A DAY)
     Route: 048
     Dates: start: 20131022, end: 20180404
  7. ARTIST [Concomitant]
     Active Substance: CARVEDILOL
     Dosage: UNK
     Dates: start: 20110810
  8. MEVALOTIN [Concomitant]
     Active Substance: PRAVASTATIN SODIUM
     Dosage: UNK
     Dates: start: 201011
  9. METHYCOBAL [Concomitant]
     Active Substance: METHYLCOBALAMIN
     Dosage: UNK
     Dates: start: 20110415, end: 20180321
  10. BAYASPIRIN [Concomitant]
     Active Substance: ASPIRIN
     Dosage: UNK
     Dates: start: 201011
  11. GLACTIV [Suspect]
     Active Substance: SITAGLIPTIN
     Dosage: 50 MG, (STRENGTH: 12.5 MG, 25MG, 50 MG, 100 MG) (ONCE A DAY)
     Route: 048
     Dates: start: 20110823, end: 20131021
  12. PLAVIX [Concomitant]
     Active Substance: CLOPIDOGREL BISULFATE
     Dosage: UNK
     Dates: start: 201011
  13. CELECOX [Concomitant]
     Active Substance: CELECOXIB
     Dosage: UNK
     Dates: start: 20110415, end: 20180311
  14. LIMARMONE [Concomitant]
     Active Substance: LIMAPROST
     Dosage: UNK
     Dates: start: 20110422, end: 20180721
  15. SEIBULE [Concomitant]
     Active Substance: MIGLITOL
     Dosage: UNK
     Dates: start: 20140304, end: 20140623
  16. SEIBULE [Concomitant]
     Active Substance: MIGLITOL
     Dosage: UNK
     Route: 065
     Dates: start: 20140624
  17. MUCOSTA [Concomitant]
     Active Substance: REBAMIPIDE
     Dosage: UNK
     Dates: start: 20110415, end: 20180311
  18. TAKEPRON [Concomitant]
     Active Substance: LANSOPRAZOLE
     Dosage: UNK
     Dates: start: 20120131

REACTIONS (1)
  - Seronegative arthritis [Recovering/Resolving]

NARRATIVE: CASE EVENT DATE: 20180122
